FAERS Safety Report 17719582 (Version 14)
Quarter: 2021Q2

REPORT INFORMATION
  Report Type: Report from Study
  Country: CA (occurrence: CA)
  Receive Date: 20200428
  Receipt Date: 20210618
  Transmission Date: 20210716
  Serious: Yes (Hospitalization, Other)
  Sender: FDA-Public Use
  Company Number: PHHY2016CA125989

PATIENT
  Age: 65 Year
  Sex: Male

DRUGS (9)
  1. SANDOSTATIN [Suspect]
     Active Substance: OCTREOTIDE ACETATE
  2. CORTISONE [Concomitant]
     Active Substance: CORTISONE
     Indication: ARTHRALGIA
     Dosage: UNK
     Route: 065
     Dates: start: 20191029
  3. SANDOSTATIN [Suspect]
     Active Substance: OCTREOTIDE ACETATE
     Indication: ACROMEGALY
     Dosage: 50 UG, UNK
     Route: 058
     Dates: start: 20160708, end: 2016
  4. SANDOSTATIN LAR DEPOT [Suspect]
     Active Substance: OCTREOTIDE ACETATE
  5. SANDOSTATIN LAR DEPOT [Suspect]
     Active Substance: OCTREOTIDE ACETATE
  6. RAMIPRIL. [Suspect]
     Active Substance: RAMIPRIL
     Dosage: 5 MG, QD
     Route: 065
  7. SANDOSTATIN [Suspect]
     Active Substance: OCTREOTIDE ACETATE
  8. SANDOSTATIN LAR DEPOT [Suspect]
     Active Substance: OCTREOTIDE ACETATE
     Indication: ACROMEGALY
     Dosage: 20 MG, QW4 (EVERY 4 WEEKS)
     Route: 030
     Dates: start: 20160715
  9. RAMIPRIL. [Suspect]
     Active Substance: RAMIPRIL
     Indication: HYPERTENSION
     Dosage: 10 MG, QD
     Route: 065

REACTIONS (28)
  - Transfusion-related circulatory overload [Unknown]
  - Foot fracture [Unknown]
  - Body temperature decreased [Unknown]
  - Fatigue [Unknown]
  - Orthostatic hypotension [Unknown]
  - Blood pressure increased [Unknown]
  - Back injury [Unknown]
  - Heart rate increased [Unknown]
  - Rib fracture [Unknown]
  - Fall [Unknown]
  - Hot flush [Unknown]
  - Contusion [Recovering/Resolving]
  - Intermittent claudication [Unknown]
  - Blood glucose increased [Unknown]
  - Dizziness [Unknown]
  - Blood pressure decreased [Unknown]
  - Back pain [Unknown]
  - Vertigo [Recovering/Resolving]
  - Pain [Recovering/Resolving]
  - Muscular weakness [Unknown]
  - Hypokinesia [Unknown]
  - Joint injury [Unknown]
  - Pain in extremity [Unknown]
  - Wound [Unknown]
  - Campylobacter infection [Recovered/Resolved]
  - Cough [Unknown]
  - Blood pressure systolic increased [Unknown]
  - Headache [Unknown]

NARRATIVE: CASE EVENT DATE: 201608
